FAERS Safety Report 10916853 (Version 2)
Quarter: 2015Q2

REPORT INFORMATION
  Report Type: Spontaneous
  Country: US (occurrence: US)
  Receive Date: 20150316
  Receipt Date: 20150524
  Transmission Date: 20150821
  Serious: No
  Sender: FDA-Public Use
  Company Number: US-JNJFOC-20141212509

PATIENT
  Age: 84 Year
  Sex: Male
  Weight: 65.32 kg

DRUGS (3)
  1. ZYTIGA [Suspect]
     Active Substance: ABIRATERONE ACETATE
     Indication: HORMONE THERAPY
     Route: 048
     Dates: start: 20140626
  2. PREDNISONE. [Concomitant]
     Active Substance: PREDNISONE
     Indication: PRODUCT USED FOR UNKNOWN INDICATION
     Route: 048
     Dates: start: 20140626
  3. ELIGARD [Concomitant]
     Active Substance: LEUPROLIDE ACETATE
     Indication: BLOOD TESTOSTERONE
     Route: 065
     Dates: start: 201101

REACTIONS (4)
  - Abdominal pain upper [Not Recovered/Not Resolved]
  - Prostatic specific antigen increased [Unknown]
  - Nausea [Not Recovered/Not Resolved]
  - Product use issue [Unknown]

NARRATIVE: CASE EVENT DATE: 201411
